FAERS Safety Report 22027445 (Version 1)
Quarter: 2023Q1

REPORT INFORMATION
  Report Type: Spontaneous
  Country: US (occurrence: None)
  Receive Date: 20230220
  Receipt Date: 20230220
  Transmission Date: 20230417
  Serious: No
  Sender: FDA-Public Use
  Company Number: None

PATIENT
  Sex: 0

DRUGS (2)
  1. CLONAZEPAM [Suspect]
     Active Substance: CLONAZEPAM
  2. LORAZEPAM [Suspect]
     Active Substance: LORAZEPAM

REACTIONS (3)
  - Depression [None]
  - Vomiting [None]
  - Hypophagia [None]
